FAERS Safety Report 4508505-X (Version None)
Quarter: 2004Q4

REPORT INFORMATION
  Report Type: 
  Country: None (occurrence: None)
  Receive Date: 20041123
  Receipt Date: 20040310
  Transmission Date: 20050328
  Serious: No
  Sender: FDA-Public Use
  Company Number: US-GLAXOSMITHKLINE-A0502179A

PATIENT
  Age: 71 Year
  Sex: Female
  Weight: 63.6 kg

DRUGS (4)
  1. WELLBUTRIN SR [Suspect]
     Indication: DEPRESSION
     Dosage: 150MG TWICE PER DAY
     Route: 048
  2. ATENOLOL [Suspect]
     Indication: BLOOD PRESSURE
     Route: 065
  3. ENALAPRIL [Concomitant]
  4. SYNTHROID [Concomitant]

REACTIONS (2)
  - ALOPECIA [None]
  - DRY SKIN [None]
